FAERS Safety Report 5445421-3 (Version None)
Quarter: 2007Q3

REPORT INFORMATION
  Report Type: 
  Country: None (occurrence: None)
  Receive Date: 20070906
  Receipt Date: 20070626
  Transmission Date: 20080115
  Serious: No
  Sender: FDA-Public Use
  Company Number: A0660247A

PATIENT
  Age: 43 Year
  Sex: Female

DRUGS (3)
  1. REQUIP [Suspect]
     Indication: RESTLESS LEGS SYNDROME
     Dosage: .5MG UNKNOWN
     Route: 048
     Dates: start: 20061101
  2. TOPAMAX [Concomitant]
  3. NEXIUM [Concomitant]

REACTIONS (3)
  - FORMICATION [None]
  - MENTAL DISORDER [None]
  - NAUSEA [None]
